FAERS Safety Report 8407570 (Version 2)
Quarter: 2014Q2

REPORT INFORMATION
  Report Type: Spontaneous
  Country: US (occurrence: US)
  Receive Date: 20120215
  Receipt Date: 20140520
  Transmission Date: 20141212
  Serious: Yes (Other)
  Sender: FDA-Public Use
  Company Number: US-ROCHE-792823

PATIENT
  Age: 28 Year
  Sex: Female
  Weight: 59.02 kg

DRUGS (1)
  1. ACCUTANE [Suspect]
     Indication: ACNE
     Route: 065
     Dates: start: 19970101, end: 20011231

REACTIONS (21)
  - Crohn^s disease [Unknown]
  - Inflammatory bowel disease [Unknown]
  - Coeliac disease [Unknown]
  - Peptic ulcer [Unknown]
  - Cystitis interstitial [Unknown]
  - Liver disorder [Unknown]
  - Thyroid disorder [Unknown]
  - Arthritis [Unknown]
  - Dry eye [Unknown]
  - Depression [Unknown]
  - Panic attack [Unknown]
  - Colitis ulcerative [Unknown]
  - Anal fistula [Unknown]
  - Anal abscess [Unknown]
  - Irritable bowel syndrome [Unknown]
  - Blood cholesterol increased [Unknown]
  - Blood triglycerides increased [Unknown]
  - Eye irritation [Unknown]
  - Oropharyngeal pain [Unknown]
  - Back pain [Unknown]
  - Ear pain [Unknown]
